FAERS Safety Report 24605901 (Version 1)
Quarter: 2024Q4

REPORT INFORMATION
  Report Type: Report from Study
  Country: CA (occurrence: CA)
  Receive Date: 20241111
  Receipt Date: 20241111
  Transmission Date: 20250115
  Serious: Yes (Other)
  Sender: ALEXION PHARMACEUTICALS
  Company Number: CA-AstraZeneca-2022A180662

PATIENT
  Age: 75 Year

DRUGS (21)
  1. CALQUENCE [Suspect]
     Active Substance: ACALABRUTINIB
     Indication: Chronic lymphocytic leukaemia
     Dosage: 100 MILLIGRAM, Q12H
  2. CALQUENCE [Suspect]
     Active Substance: ACALABRUTINIB
     Dosage: 100 MILLIGRAM, Q12H
  3. CALQUENCE [Suspect]
     Active Substance: ACALABRUTINIB
     Dosage: 100 MILLIGRAM, Q12H
  4. CALQUENCE [Suspect]
     Active Substance: ACALABRUTINIB
     Dosage: 100 MILLIGRAM, Q12H
  5. CALQUENCE [Suspect]
     Active Substance: ACALABRUTINIB
     Dosage: 200 MILLIGRAM, Q12H
  6. CALQUENCE [Suspect]
     Active Substance: ACALABRUTINIB
     Dosage: 200 MILLIGRAM, Q12H
  7. CALQUENCE [Suspect]
     Active Substance: ACALABRUTINIB
     Dosage: 200 MILLIGRAM, Q12H
  8. CALQUENCE [Suspect]
     Active Substance: ACALABRUTINIB
     Dosage: 200 MILLIGRAM, Q12H
  9. CALQUENCE [Suspect]
     Active Substance: ACALABRUTINIB
     Dosage: 100 MILLIGRAM, BID
  10. CALQUENCE [Suspect]
     Active Substance: ACALABRUTINIB
     Dosage: 100 MILLIGRAM, BID
  11. CALQUENCE [Suspect]
     Active Substance: ACALABRUTINIB
     Dosage: 100 MILLIGRAM, BID
  12. CALQUENCE [Suspect]
     Active Substance: ACALABRUTINIB
     Dosage: 100 MILLIGRAM, BID
  13. BISOPROLOL [Concomitant]
     Active Substance: BISOPROLOL\BISOPROLOL FUMARATE
  14. ELIQUIS [Concomitant]
     Active Substance: APIXABAN
  15. FINASTERIDE [Concomitant]
     Active Substance: FINASTERIDE
  16. HUMAN IMMUNOGLOBULIN G [Concomitant]
     Active Substance: HUMAN IMMUNOGLOBULIN G
  17. INDAPAMIDE [Concomitant]
     Active Substance: INDAPAMIDE
  18. PERINDOPRIL [Concomitant]
     Active Substance: PERINDOPRIL
  19. ROPINIROLE [Concomitant]
     Active Substance: ROPINIROLE
  20. ROSUVASTATIN [Concomitant]
     Active Substance: ROSUVASTATIN
  21. TAMSULOSIN [Concomitant]
     Active Substance: TAMSULOSIN

REACTIONS (4)
  - Porocarcinoma [Unknown]
  - Heart rate increased [Not Recovered/Not Resolved]
  - Spinal operation [Unknown]
  - Incision site impaired healing [Unknown]
